FAERS Safety Report 5153189-3 (Version None)
Quarter: 2006Q4

REPORT INFORMATION
  Report Type: 
  Country: None (occurrence: None)
  Receive Date: 20061114
  Receipt Date: 20061102
  Transmission Date: 20070319
  Serious: Yes (Other)
  Sender: FDA-Public Use
  Company Number: GXKR2006CH07044

PATIENT
  Age: 44 Year
  Sex: Female
  Weight: 100 kg

DRUGS (8)
  1. ALLOPURINOL [Suspect]
     Indication: HYPERURICAEMIA
     Dosage: 150 MG, QD, ORAL
     Route: 048
     Dates: start: 20060602
  2. PRAVASTATIN SODIUM [Suspect]
     Indication: HYPERCHOLESTEROLAEMIA
     Dosage: 40 MG, QD,ORAL
     Route: 048
     Dates: start: 20060602
  3. ZANIDIP(LERCANIDIPINE HYDROCHOLORIDE) [Suspect]
     Indication: ESSENTIAL HYPERTENSION
     Dosage: 20 MG, QD, ORAL
     Route: 048
     Dates: start: 20030613, end: 20060620
  4. ASPIRIN CARDIO (ACETYLSALICYLIC ACID) FILM COATED TABLET [Concomitant]
  5. PHYSIOTENS (MOXONIDINE) FILM-COATED TABLET [Concomitant]
  6. DIOVAN HCT [Concomitant]
  7. LEVOTHYROXINE SODIUM (LEVOTHYROXINE SODIUM) TABLET [Concomitant]
  8. DAFALGAN (PARACETAMOL) [Concomitant]

REACTIONS (2)
  - BLINDNESS [None]
  - RETINAL VEIN THROMBOSIS [None]
